FAERS Safety Report 12591188 (Version 2)
Quarter: 2016Q3

REPORT INFORMATION
  Report Type: Spontaneous
  Country: US (occurrence: US)
  Receive Date: 20160726
  Receipt Date: 20160727
  Transmission Date: 20161109
  Serious: No
  Sender: FDA-Public Use
  Company Number: US-UNITED THERAPEUTICS-UNT-2016-005248

PATIENT
  Age: 52 Year
  Sex: Female
  Weight: 90.7 kg

DRUGS (1)
  1. REMODULIN [Suspect]
     Active Substance: TREPROSTINIL
     Indication: PULMONARY HYPERTENSION
     Dosage: 0.092 ?G/KG, CONTINUING
     Route: 058
     Dates: start: 20120910

REACTIONS (4)
  - Flushing [Unknown]
  - Wrong technique in product usage process [Unknown]
  - Headache [Unknown]
  - Accidental overdose [Unknown]

NARRATIVE: CASE EVENT DATE: 201603
